FAERS Safety Report 10250334 (Version 2)
Quarter: 2014Q2

REPORT INFORMATION
  Report Type: Spontaneous
  Country: US (occurrence: US)
  Receive Date: 20140620
  Receipt Date: 20140620
  Transmission Date: 20141212
  Serious: Yes (Hospitalization, Other)
  Sender: FDA-Public Use
  Company Number: US-AMGEN-USASP2014029162

PATIENT
  Age: 66 Year
  Sex: Female
  Weight: 89.34 kg

DRUGS (9)
  1. ENBREL [Suspect]
     Indication: RHEUMATOID ARTHRITIS
     Dosage: 50 MG, QWK
     Route: 058
     Dates: start: 20000402
  2. NEXIUM                             /01479302/ [Concomitant]
     Dosage: UNK
  3. CALCIUM [Concomitant]
     Dosage: UNK
  4. AMLODIPINE [Concomitant]
     Dosage: UNK
  5. MAGNESIUM [Concomitant]
     Dosage: UNK
  6. METOPROLOL [Concomitant]
     Dosage: UNK
  7. CYCLOSPORIN [Concomitant]
     Dosage: 800 MG DAILY
     Dates: start: 201310
  8. CYCLOSPORIN [Concomitant]
     Dosage: 100 MG EVERY OTHER DAY
     Dates: start: 201312
  9. RECLAST [Concomitant]
     Dosage: UNK

REACTIONS (22)
  - Pneumonia [Unknown]
  - Fatigue [Unknown]
  - Dyspnoea [Unknown]
  - Local swelling [Not Recovered/Not Resolved]
  - Urticaria [Unknown]
  - Pruritus [Unknown]
  - Arthralgia [Not Recovered/Not Resolved]
  - Joint swelling [Not Recovered/Not Resolved]
  - Joint stiffness [Not Recovered/Not Resolved]
  - Hypoaesthesia [Not Recovered/Not Resolved]
  - Pain in extremity [Not Recovered/Not Resolved]
  - Lip swelling [Unknown]
  - Pharyngeal oedema [Unknown]
  - Haematocrit decreased [Unknown]
  - Blood test abnormal [Unknown]
  - Pyrexia [Unknown]
  - Bone marrow disorder [Unknown]
  - T-lymphocyte count increased [Unknown]
  - Cholelithiasis [Recovered/Resolved]
  - Iron deficiency anaemia [Unknown]
  - Anaphylactic transfusion reaction [Unknown]
  - Neutrophil count abnormal [Unknown]
